FAERS Safety Report 11521920 (Version 1)
Quarter: 2015Q3

REPORT INFORMATION
  Report Type: Spontaneous
  Country: US (occurrence: US)
  Receive Date: 20150903
  Receipt Date: 20150903
  Transmission Date: 20151125
  Serious: No
  Sender: FDA-Public Use
  Company Number: US-ELI_LILLY_AND_COMPANY-US201210001301

PATIENT
  Age: 53 Year
  Sex: Female

DRUGS (1)
  1. CYMBALTA [Suspect]
     Active Substance: DULOXETINE HYDROCHLORIDE
     Indication: BACK PAIN
     Dosage: 30 MG, QD
     Dates: end: 201209

REACTIONS (7)
  - Blister [Unknown]
  - Vomiting [Unknown]
  - Off label use [Unknown]
  - Drug withdrawal syndrome [Unknown]
  - Skin exfoliation [Unknown]
  - Urinary retention [Unknown]
  - Nausea [Unknown]

NARRATIVE: CASE EVENT DATE: 201209
